FAERS Safety Report 24218813 (Version 1)
Quarter: 2024Q3

REPORT INFORMATION
  Report Type: Spontaneous
  Country: US (occurrence: None)
  Receive Date: 20240816
  Receipt Date: 20240816
  Transmission Date: 20241016
  Serious: No
  Sender: Public
  Company Number: None

PATIENT
  Sex: Male

DRUGS (2)
  1. HYRIMOZ [Suspect]
     Active Substance: ADALIMUMAB-ADAZ
     Indication: Rheumatoid arthritis
     Dosage: OTHER FREQUENCY : EVERY2WEEKS;?
     Dates: start: 20230829
  2. ADALIMU~AB-AD41 PHJS INJ [Concomitant]

REACTIONS (2)
  - Drug ineffective [None]
  - Therapy cessation [None]
